FAERS Safety Report 5823321-4 (Version None)
Quarter: 2008Q3

REPORT INFORMATION
  Report Type: 
  Country: None (occurrence: None)
  Receive Date: 20080725
  Receipt Date: 20070621
  Transmission Date: 20090109
  Serious: No
  Sender: FDA-Public Use
  Company Number: US-AMGEN-KDL230339

PATIENT
  Sex: Male
  Weight: 63.6 kg

DRUGS (1)
  1. PROCRIT [Suspect]
     Indication: ANAEMIA
     Dates: start: 20070101

REACTIONS (3)
  - DYSPNOEA [None]
  - HYPOTENSION [None]
  - VERTIGO [None]
